FAERS Safety Report 9500380 (Version 1)
Quarter: 2013Q1

REPORT INFORMATION
  Report Type: Spontaneous
  Country: US (occurrence: None)
  Receive Date: 20130124
  Receipt Date: 20130124
  Transmission Date: 20140127
  Serious: Yes (Other)
  Sender: FDA-Public Use
  Company Number: 2012PROUSA01890

PATIENT
  Age: 60 Year
  Sex: Male
  Weight: 54.9 kg

DRUGS (2)
  1. PROVENGE (SIPULEUCEL-T) SUSPENSION, 250ML [Suspect]
     Indication: PROSTATE CANCER METASTATIC
     Route: 042
     Dates: start: 20120806, end: 20120806
  2. CASODEX (BICALUTAMIDE) [Concomitant]

REACTIONS (2)
  - Spinal cord compression [None]
  - Culture positive [None]
